FAERS Safety Report 7711681-9 (Version None)
Quarter: 2011Q3

REPORT INFORMATION
  Report Type: 
  Country: None (occurrence: None)
  Receive Date: 20110826
  Receipt Date: 20110819
  Transmission Date: 20111222
  Serious: Yes (Hospitalization, Disabling, Other)
  Sender: FDA-Public Use
  Company Number: US-JNJFOC-20110304383

PATIENT
  Sex: Female

DRUGS (5)
  1. LEVAQUIN [Suspect]
     Indication: LOWER RESPIRATORY TRACT INFECTION
     Route: 048
     Dates: start: 20090601
  2. LEVAQUIN [Suspect]
     Indication: BRONCHITIS
     Route: 048
     Dates: start: 20090601
  3. VERAMYST NOS [Concomitant]
     Indication: SINUSITIS
     Route: 065
  4. VERAMYST NOS [Concomitant]
     Indication: BRONCHITIS
     Route: 065
  5. STEROIDS NOS [Suspect]
     Indication: PRODUCT USED FOR UNKNOWN INDICATION
     Route: 065

REACTIONS (6)
  - PERIARTHRITIS [None]
  - JOINT INJURY [None]
  - DRUG HYPERSENSITIVITY [None]
  - TENDON RUPTURE [None]
  - LIGAMENT RUPTURE [None]
  - ROTATOR CUFF SYNDROME [None]
